FAERS Safety Report 12471558 (Version 1)
Quarter: 2016Q2

REPORT INFORMATION
  Report Type: Spontaneous
  Country: US (occurrence: None)
  Receive Date: 20160615
  Receipt Date: 20160615
  Transmission Date: 20160815
  Serious: Yes (Other)
  Sender: FDA-Public Use
  Company Number: None

PATIENT
  Age: 11 Year
  Sex: Female

DRUGS (3)
  1. GLEOSTINE [Suspect]
     Active Substance: LOMUSTINE
     Indication: BRAIN NEOPLASM
     Dosage: 10MG  DAY 1 OF CYCLE BY MOUTH
     Route: 048
     Dates: start: 20150913
  2. GLEOSTINE [Suspect]
     Active Substance: LOMUSTINE
     Dosage: 40 MG ON DAY ONE OF CYCLE FOR TOTAL DOSE OF 150MG ON DAY 1
     Dates: start: 20150915
  3. GLEOSTINE [Suspect]
     Active Substance: LOMUSTINE
     Indication: BRAIN NEOPLASM
     Dosage: 100MG DAY 1 OF CYCLE BY MOUTH
     Route: 048
     Dates: start: 20150913

REACTIONS (1)
  - Full blood count decreased [None]

NARRATIVE: CASE EVENT DATE: 20160614
